FAERS Safety Report 7341445-X (Version None)
Quarter: 2011Q1

REPORT INFORMATION
  Report Type: 
  Country: None (occurrence: None)
  Receive Date: 20110228
  Receipt Date: 20110216
  Transmission Date: 20110831
  Serious: Yes (Hospitalization)
  Sender: FDA-Public Use
  Company Number: 2011US005505

PATIENT
  Age: 47 Year
  Sex: Female

DRUGS (10)
  1. ALOXI [Suspect]
     Indication: PROPHYLAXIS OF NAUSEA AND VOMITING
     Dosage: 0.25 MG, Q3WK, INTRAVENOUS
     Route: 042
     Dates: start: 20101228
  2. BENADRYL [Concomitant]
  3. IRON (IRON) [Concomitant]
  4. EMEND [Suspect]
     Dosage: 115 MG, Q3WK, INTRAVENOUS
     Route: 042
     Dates: start: 20101228
  5. IXABEPILONE (IXABEPILONE) [Suspect]
     Indication: BREAST CANCER
     Dosage: 84 MG, Q3WK, INTRAVENOUS
     Route: 042
     Dates: start: 20101228
  6. COMPAZINE [Concomitant]
  7. DECADRON [Concomitant]
  8. OMEPRAZOLE [Concomitant]
  9. CYCLOPHOSPHAMIDE [Suspect]
     Indication: BREAST CANCER
     Dosage: 1260 MG, Q3WK, INTRAVENOUS
     Route: 042
     Dates: start: 20101228
  10. ZANTAC [Concomitant]

REACTIONS (5)
  - LARGE INTESTINAL ULCER [None]
  - CONSTIPATION [None]
  - PROCTITIS [None]
  - COLONIC OBSTRUCTION [None]
  - ABDOMINAL DISCOMFORT [None]
